FAERS Safety Report 5450807-7 (Version None)
Quarter: 2007Q3

REPORT INFORMATION
  Report Type: 
  Country: None (occurrence: None)
  Receive Date: 20070803
  Receipt Date: 20061024
  Transmission Date: 20080115
  Serious: Yes (Hospitalization, Disabling)
  Sender: FDA-Public Use
  Company Number: US-JNJFOC-20061005798

PATIENT
  Age: 47 Year
  Sex: Male

DRUGS (7)
  1. ACETAMINOPHEN [Suspect]
     Indication: SUICIDE ATTEMPT
     Dosage: 150 DOSE (S), 1 IN 1 TOTAL, ORAL
     Route: 048
     Dates: start: 20021103, end: 20021103
  2. PAXIL [Suspect]
     Indication: DRUG USE FOR UNKNOWN INDICATION
     Dosage: 30 MG, 1 IN 1 DAY
  3. XANAX [Suspect]
     Indication: SUICIDE ATTEMPT
     Dosage: 180 DOSE (S), 1 IN 1 TOTAL, ORAL
     Route: 048
     Dates: start: 20021103, end: 20021103
  4. BUSPIRONE HCL [Concomitant]
  5. LORAZEPAM [Concomitant]
  6. CLONAZEPAM [Concomitant]
  7. RAMIPRIL [Concomitant]

REACTIONS (1)
  - INTENTIONAL OVERDOSE [None]
